FAERS Safety Report 4498660-2 (Version None)
Quarter: 2004Q3

REPORT INFORMATION
  Report Type: 
  Country: None (occurrence: None)
  Receive Date: 20040927
  Receipt Date: 20040618
  Transmission Date: 20050211
  Serious: No
  Sender: FDA-Public Use
  Company Number: USA040670621

PATIENT
  Age: 39 Year
  Sex: Female
  Weight: 95 kg

DRUGS (2)
  1. STRATTERA [Suspect]
     Indication: FATIGUE
     Dates: start: 20040601
  2. EFFEXOR [Concomitant]

REACTIONS (6)
  - BLOOD URINE [None]
  - CONVERSION DISORDER [None]
  - CRYING [None]
  - EAR HAEMORRHAGE [None]
  - FEELING ABNORMAL [None]
  - HAEMATOCHEZIA [None]
